FAERS Safety Report 17849438 (Version 1)
Quarter: 2020Q2

REPORT INFORMATION
  Report Type: Spontaneous
  Country: US (occurrence: US)
  Receive Date: 20200601
  Receipt Date: 20200601
  Transmission Date: 20200714
  Serious: Yes (Other)
  Sender: FDA-Public Use
  Company Number: None

PATIENT
  Age: 75 Year
  Sex: Female
  Weight: 76.5 kg

DRUGS (1)
  1. GAMMAPLEX [Suspect]
     Active Substance: HUMAN IMMUNOGLOBULIN G
     Indication: CHRONIC INFLAMMATORY DEMYELINATING POLYRADICULONEUROPATHY
     Dosage: ?          OTHER FREQUENCY:QD X3 DAY/MONTH;?
     Route: 042
     Dates: start: 20200527, end: 20200529

REACTIONS (4)
  - Headache [None]
  - Nausea [None]
  - Blood pressure increased [None]
  - Blood pressure fluctuation [None]

NARRATIVE: CASE EVENT DATE: 20200527
